FAERS Safety Report 4297956-7 (Version None)
Quarter: 2004Q1

REPORT INFORMATION
  Report Type: 
  Country: None (occurrence: None)
  Receive Date: 20040218
  Receipt Date: 19951211
  Transmission Date: 20041129
  Serious: Yes (Other)
  Sender: FDA-Public Use
  Company Number: M054776

PATIENT
  Age: 30 Year
  Sex: Female

DRUGS (7)
  1. STADOL [Suspect]
     Indication: PAIN
     Dosage: DOSE UNIT: SPRAY
     Route: 050
     Dates: start: 19941001
  2. NOT REPORTED [Concomitant]
  3. TYLENOL W/ CODEINE NO. 3 [Concomitant]
  4. KLONOPIN [Concomitant]
  5. ELAVIL [Concomitant]
  6. FIORICET [Concomitant]
  7. VALIUM [Concomitant]
     Indication: JOINT DISLOCATION

REACTIONS (3)
  - DEPENDENCE [None]
  - DRUG ABUSER [None]
  - DRUG DEPENDENCE [None]
